FAERS Safety Report 4670008-X (Version None)
Quarter: 2005Q2

REPORT INFORMATION
  Report Type: 
  Country: None (occurrence: None)
  Receive Date: 20050523
  Receipt Date: 20050512
  Transmission Date: 20051028
  Serious: Yes (Other)
  Sender: FDA-Public Use
  Company Number: PHBS2005BE06688

PATIENT
  Age: 35 Year
  Sex: Male

DRUGS (1)
  1. LESCOL XL [Suspect]
     Dosage: 80 MG, QD
     Route: 048
     Dates: end: 20050512

REACTIONS (3)
  - BLOOD CREATINE PHOSPHOKINASE INCREASED [None]
  - DIFFICULTY IN WALKING [None]
  - TRANSAMINASES INCREASED [None]
